FAERS Safety Report 25983973 (Version 1)
Quarter: 2025Q4

REPORT INFORMATION
  Report Type: Spontaneous
  Country: US (occurrence: US)
  Receive Date: 20251031
  Receipt Date: 20251031
  Transmission Date: 20260117
  Serious: No
  Sender: MERCK SHARP & DOHME LLC
  Company Number: US-009507513-2345093

PATIENT
  Sex: Male
  Weight: 59.4 kg

DRUGS (17)
  1. WINREVAIR [Suspect]
     Active Substance: SOTATERCEPT-CSRK
     Indication: Product used for unknown indication
  2. WINREVAIR [Suspect]
     Active Substance: SOTATERCEPT-CSRK
  3. WINREVAIR [Suspect]
     Active Substance: SOTATERCEPT-CSRK
  4. WINREVAIR [Suspect]
     Active Substance: SOTATERCEPT-CSRK
  5. TYVASO DPI [Suspect]
     Active Substance: TREPROSTINIL
     Indication: Pulmonary arterial hypertension
     Dosage: STRENGTH: 64 ?G, CURRENT DOSE: 64 ?G
     Route: 055
     Dates: start: 20221024
  6. CALCIUM [Concomitant]
     Active Substance: CALCIUM
  7. OMEPRAZOLE [Concomitant]
     Active Substance: OMEPRAZOLE
  8. POTASSIUM CHLORIDE [Concomitant]
     Active Substance: POTASSIUM CHLORIDE
  9. MYCOPHENOLATE MOFETIL [Concomitant]
     Active Substance: MYCOPHENOLATE MOFETIL
  10. TADALAFIL [Concomitant]
     Active Substance: TADALAFIL
  11. JARDIANCE [Concomitant]
     Active Substance: EMPAGLIFLOZIN
  12. VITAMIN D2 [Concomitant]
     Active Substance: ERGOCALCIFEROL
  13. URSODIOL [Concomitant]
     Active Substance: URSODIOL
  14. PREDNISONE [Concomitant]
     Active Substance: PREDNISONE
  15. OXYGEN [Concomitant]
     Active Substance: OXYGEN
  16. FUROSEMIDE [Concomitant]
     Active Substance: FUROSEMIDE
  17. FERROUS SULFATE [Concomitant]
     Active Substance: FERROUS SULFATE

REACTIONS (1)
  - Epistaxis [Unknown]
